FAERS Safety Report 24461638 (Version 2)
Quarter: 2024Q4

REPORT INFORMATION
  Report Type: Spontaneous
  Country: US (occurrence: US)
  Receive Date: 20241018
  Receipt Date: 20241119
  Transmission Date: 20250114
  Serious: No
  Sender: ROCHE
  Company Number: US-ROCHE-3565077

PATIENT
  Sex: Male

DRUGS (28)
  1. RITUXAN [Suspect]
     Active Substance: RITUXIMAB
     Indication: Follicular lymphoma
     Route: 065
  2. AMITRIPTYLINE [Concomitant]
     Active Substance: AMITRIPTYLINE
  3. ATORVASTATIN [Concomitant]
     Active Substance: ATORVASTATIN
  4. COENZYME Q10 [Concomitant]
     Active Substance: DIETARY SUPPLEMENT\UBIDECARENONE
  5. DILTIAZEM [Concomitant]
     Active Substance: DILTIAZEM
  6. HYDROCODONE [Concomitant]
     Active Substance: HYDROCODONE
  7. LUPRON DEPOT [Concomitant]
     Active Substance: LEUPROLIDE ACETATE
  8. METAMUCIL [Concomitant]
     Active Substance: PLANTAGO SEED
  9. METHOCARBAMOL [Concomitant]
     Active Substance: METHOCARBAMOL
  10. MODAFINIL [Concomitant]
     Active Substance: MODAFINIL
  11. STOOL SOFTENER (DOCUSATE) [Concomitant]
     Active Substance: DOCUSATE
  12. HERBALS\TURMERIC [Concomitant]
     Active Substance: HERBALS\TURMERIC
  13. ELIQUIS [Concomitant]
     Active Substance: APIXABAN
  14. LYNPARZA [Concomitant]
     Active Substance: OLAPARIB
  15. ONDANSETRON [Concomitant]
     Active Substance: ONDANSETRON
  16. CLOPIDOGREL [Concomitant]
     Active Substance: CLOPIDOGREL BISULFATE
  17. GABAPENTIN [Concomitant]
     Active Substance: GABAPENTIN
  18. LIDOCAINE [Concomitant]
     Active Substance: LIDOCAINE
  19. PREDNISONE [Concomitant]
     Active Substance: PREDNISONE
  20. AMITRIPTYLINE [Concomitant]
     Active Substance: AMITRIPTYLINE
  21. ATORVASTATIN [Concomitant]
     Active Substance: ATORVASTATIN
     Route: 050
  22. DILTIAZEM HYDROCHLORIDE [Concomitant]
     Active Substance: DILTIAZEM HYDROCHLORIDE
  23. ELDERBERRY [RUBUS IDAEUS LEAF;SAMBUCUS NIGRA FLOWER;SAMBUCUS NIGRA FRU [Concomitant]
  24. HYDROCODONE [Concomitant]
     Active Substance: HYDROCODONE
  25. LUPRON DEPOT [Concomitant]
     Active Substance: LEUPROLIDE ACETATE
  26. METAMUCIL 4 IN 1 FIBER [Concomitant]
  27. METFORMIN [Concomitant]
     Active Substance: METFORMIN HYDROCHLORIDE
  28. POTASSIUM [Concomitant]
     Active Substance: POTASSIUM

REACTIONS (4)
  - Off label use [Unknown]
  - Malaise [Recovering/Resolving]
  - Vomiting [Recovering/Resolving]
  - Hair colour changes [Recovering/Resolving]
